FAERS Safety Report 16956897 (Version 1)
Quarter: 2019Q4

REPORT INFORMATION
  Report Type: Spontaneous
  Country: US (occurrence: US)
  Receive Date: 20191024
  Receipt Date: 20191024
  Transmission Date: 20200122
  Serious: No
  Sender: FDA-Public Use
  Company Number: US-BAYER-2019-190845

PATIENT
  Age: 89 Year
  Sex: Female
  Weight: 58 kg

DRUGS (8)
  1. MIRALAX [Suspect]
     Active Substance: POLYETHYLENE GLYCOL 3350
     Indication: GASTROINTESTINAL DISORDER
     Dosage: 1 DF, QD
     Route: 048
     Dates: start: 2018
  2. LAXATIVE [BISACODYL] [Concomitant]
     Active Substance: BISACODYL
  3. LOVASTATIN. [Concomitant]
     Active Substance: LOVASTATIN
  4. MINERALS NOS;VITAMINS NOS [Concomitant]
     Active Substance: MINERALS\VITAMINS
  5. COUMADIN [Concomitant]
     Active Substance: WARFARIN SODIUM
  6. BENAZEPRIL [Concomitant]
     Active Substance: BENAZEPRIL HYDROCHLORIDE
  7. WATER. [Concomitant]
     Active Substance: WATER
  8. VITAMIN B12 [Concomitant]
     Active Substance: CYANOCOBALAMIN

REACTIONS (1)
  - Therapeutic product effect delayed [Unknown]

NARRATIVE: CASE EVENT DATE: 2018
